FAERS Safety Report 7552568-4 (Version None)
Quarter: 2011Q2

REPORT INFORMATION
  Report Type: 
  Country: None (occurrence: None)
  Receive Date: 20110616
  Receipt Date: 20110606
  Transmission Date: 20111010
  Serious: Yes (Life-Threatening)
  Sender: FDA-Public Use
  Company Number: US-BAXTER-2011BH018662

PATIENT
  Sex: Male

DRUGS (3)
  1. FEIBA VH [Suspect]
     Indication: FACTOR VIII INHIBITION
     Route: 042
     Dates: start: 19981101, end: 20040101
  2. FEIBA VH [Suspect]
     Indication: FACTOR VIII DEFICIENCY
     Route: 042
     Dates: start: 19981101, end: 20040101
  3. NOVOSEVEN [Concomitant]
     Indication: FACTOR VIII DEFICIENCY
     Route: 065
     Dates: start: 19990101

REACTIONS (3)
  - URTICARIA [None]
  - HYPERSENSITIVITY [None]
  - DYSPNOEA [None]
